FAERS Safety Report 4555206-8 (Version None)
Quarter: 2004Q4

REPORT INFORMATION
  Report Type: 
  Country: None (occurrence: None)
  Receive Date: 20041227
  Receipt Date: 20041108
  Transmission Date: 20050328
  Serious: No
  Sender: FDA-Public Use
  Company Number: 04P-163-0279911-00

PATIENT
  Age: 55 Year
  Sex: Female
  Weight: 81.6475 kg

DRUGS (11)
  1. HUMIRA [Suspect]
     Indication: RHEUMATOID ARTHRITIS
     Dosage: 40 MG, 1 IN 2 WK, SUBCUTANEOUS
     Route: 058
     Dates: start: 20041014
  2. CELECOXIB [Concomitant]
  3. PREDNISONE [Concomitant]
  4. METHOTREXATE SODIUM [Concomitant]
  5. ASPIRIN [Concomitant]
  6. NIFEDIPINE [Concomitant]
  7. ATENOLOL [Concomitant]
  8. FLUOXETINE HYDROCHLORIDE [Concomitant]
  9. FOLIC ACID [Concomitant]
  10. TAGAMET [Concomitant]
  11. CALCIUM GLUCONATE [Concomitant]

REACTIONS (1)
  - NASOPHARYNGITIS [None]
